FAERS Safety Report 7951639-8 (Version None)
Quarter: 2011Q4

REPORT INFORMATION
  Report Type: 
  Country: None (occurrence: None)
  Receive Date: 20111201
  Receipt Date: 20111124
  Transmission Date: 20120403
  Serious: Yes (Hospitalization, Other)
  Sender: FDA-Public Use
  Company Number: JP-JNJFOC-20111012940

PATIENT
  Age: 34 Year
  Sex: Female

DRUGS (5)
  1. AKINETON [Concomitant]
     Route: 048
  2. RISPERIDONE [Suspect]
     Dosage: 4-6 MG PER DAY
     Route: 048
     Dates: start: 20020101, end: 20090101
  3. RISPERIDONE [Suspect]
     Indication: SCHIZOPHRENIA
     Route: 048
     Dates: start: 20090101, end: 20090605
  4. BLONANSERIN [Concomitant]
     Route: 048
  5. BLONANSERIN [Concomitant]
     Indication: PRODUCT USED FOR UNKNOWN INDICATION
     Route: 048

REACTIONS (9)
  - HALLUCINATION, AUDITORY [None]
  - DYSTONIA [None]
  - CONDITION AGGRAVATED [None]
  - THERAPY CESSATION [None]
  - HYPERPHAGIA [None]
  - WEIGHT INCREASED [None]
  - AKATHISIA [None]
  - DYSKINESIA [None]
  - ELECTROCARDIOGRAM QT PROLONGED [None]
